FAERS Safety Report 5334893-0 (Version None)
Quarter: 2007Q2

REPORT INFORMATION
  Report Type: 
  Country: None (occurrence: None)
  Receive Date: 20070308
  Receipt Date: 20070119
  Transmission Date: 20071010
  Serious: No
  Sender: FDA-Public Use
  Company Number: 2007-BP-00132BP

PATIENT
  Sex: Female

DRUGS (11)
  1. SPIRIVA [Suspect]
     Indication: CHRONIC OBSTRUCTIVE PULMONARY DISEASE
     Dosage: 18 MCG (18 MCG) IH
     Route: 055
     Dates: start: 20060901
  2. SPIRIVA [Suspect]
     Indication: EMPHYSEMA
     Dosage: 18 MCG (18 MCG) IH
     Route: 055
     Dates: start: 20060901
  3. ADVAIR (SERETIDE) [Concomitant]
  4. ALBUTEROL [Concomitant]
  5. IPRATROPIUM BROMIDE [Concomitant]
  6. LEVOTHYROXINE SODIUM [Concomitant]
  7. SINGULAIR [Concomitant]
  8. FUROSEMIDE [Concomitant]
  9. BENAZEPRIL (BENAZEPRIL) [Concomitant]
  10. MUCINEX [Concomitant]
  11. OXYGEN (OXYGEN) [Concomitant]

REACTIONS (1)
  - ALOPECIA [None]
